FAERS Safety Report 9321027 (Version 1)
Quarter: 2013Q2

REPORT INFORMATION
  Report Type: Spontaneous
  Country: US (occurrence: None)
  Receive Date: 20130529
  Receipt Date: 20130529
  Transmission Date: 20140414
  Serious: Yes (Hospitalization)
  Sender: FDA-Public Use
  Company Number: None

PATIENT
  Age: 25 Year
  Sex: Male
  Weight: 78.4 kg

DRUGS (1)
  1. METHOTREXATE [Suspect]
     Dates: end: 20130523

REACTIONS (3)
  - Syncope [None]
  - Pericardial effusion [None]
  - Chest pain [None]
